FAERS Safety Report 15867056 (Version 1)
Quarter: 2019Q1

REPORT INFORMATION
  Report Type: Spontaneous
  Country: JP (occurrence: JP)
  Receive Date: 20190125
  Receipt Date: 20190125
  Transmission Date: 20190417
  Serious: Yes (Other)
  Sender: FDA-Public Use
  Company Number: JP-LUPIN PHARMACEUTICALS INC.-2019-00291

PATIENT
  Age: 53 Year
  Sex: Male

DRUGS (3)
  1. GABAPENTIN. [Suspect]
     Active Substance: GABAPENTIN
     Indication: FUNGAL INFECTION
  2. GABAPENTIN. [Suspect]
     Active Substance: GABAPENTIN
     Indication: ALLERGIC COUGH
     Dosage: 1200 MG, UNK
     Route: 065
     Dates: start: 20140315, end: 20140329
  3. GABAPENTIN. [Suspect]
     Active Substance: GABAPENTIN
     Indication: SPUTUM RETENTION

REACTIONS (3)
  - Drug ineffective for unapproved indication [Unknown]
  - Off label use [Unknown]
  - Cough [Recovering/Resolving]

NARRATIVE: CASE EVENT DATE: 201403
